FAERS Safety Report 10626973 (Version 2)
Quarter: 2015Q1

REPORT INFORMATION
  Report Type: Report from Study
  Country: US (occurrence: US)
  Receive Date: 20141204
  Receipt Date: 20150127
  Transmission Date: 20150720
  Serious: Yes (Hospitalization)
  Sender: FDA-Public Use
  Company Number: US-ROCHE-1500428

PATIENT
  Age: 40 Year
  Sex: Female
  Weight: 68 kg

DRUGS (6)
  1. PERTUZUMAB [Suspect]
     Active Substance: PERTUZUMAB
     Indication: HER-2 POSITIVE BREAST CANCER
     Dosage: CYCLE 1?OVER 60 MINUTE ON DAY 1
     Route: 042
     Dates: start: 20140626
  2. CARBOPLATIN. [Suspect]
     Active Substance: CARBOPLATIN
     Indication: HER-2 POSITIVE BREAST CANCER
     Dosage: AUC=6 MG/ML/MIN OVER 30-60 MINUTE ON DAY 1?DATE OF LAST DOSE PRIOR TO SAE: 07/AUG/2014; TOTAL DOSE A
     Route: 042
     Dates: start: 20140626
  3. DOCETAXEL. [Suspect]
     Active Substance: DOCETAXEL
     Indication: HER-2 POSITIVE BREAST CANCER
     Dosage: OVER 60 MINUTE ON DAY 1?DATE OF LAST DOSE PRIOR TO SAE: 07/AUG/2014; TOTAL DOSE ADMINISTERED THIS CO
     Route: 042
     Dates: start: 20140626
  4. TRASTUZUMAB [Suspect]
     Active Substance: TRASTUZUMAB
     Indication: HER-2 POSITIVE BREAST CANCER
     Dosage: CYCLE 1?OVER 90 MINUTES ON DAY 1
     Route: 042
     Dates: start: 20140626
  5. PERTUZUMAB [Suspect]
     Active Substance: PERTUZUMAB
     Dosage: CYCLE 2-6 OVER 30-60 MINUTE ON DAY 1?DATE OF LAST DOSE PRIOR TO SAE: 07/AUG/2014; TOTAL DOSE ADMINIS
     Route: 042
  6. TRASTUZUMAB [Suspect]
     Active Substance: TRASTUZUMAB
     Dosage: CYCLE 2-6 OVER 30-60 MINUTE ON DAY 1?DATE OF LAST DOSE PRIOR TO SAE: 07/AUG/2014; TOTAL DOSE ADMINIS
     Route: 042

REACTIONS (3)
  - Hypokalaemia [Recovering/Resolving]
  - Dehydration [Recovering/Resolving]
  - Enterocolitis [Recovering/Resolving]

NARRATIVE: CASE EVENT DATE: 20140819
